FAERS Safety Report 4317971-4 (Version None)
Quarter: 2004Q1

REPORT INFORMATION
  Report Type: 
  Country: None (occurrence: None)
  Receive Date: 20040316
  Receipt Date: 20040303
  Transmission Date: 20041129
  Serious: Yes (Other)
  Sender: FDA-Public Use
  Company Number: JP-GLAXOSMITHKLINE-B0326150A

PATIENT
  Age: 55 Year
  Sex: Male

DRUGS (1)
  1. CEFAZOLIN [Suspect]
     Dosage: 1G TWICE PER DAY
     Route: 042
     Dates: start: 20031126

REACTIONS (1)
  - ANGINA PECTORIS [None]
